FAERS Safety Report 16863215 (Version 1)
Quarter: 2019Q3

REPORT INFORMATION
  Report Type: Report from Study
  Country: FR (occurrence: FR)
  Receive Date: 20190927
  Receipt Date: 20190927
  Transmission Date: 20191005
  Serious: Yes (Other)
  Sender: FDA-Public Use
  Company Number: FR-MYLANLABS-2019M1089896

PATIENT

DRUGS (2)
  1. VINBLASTINE [Suspect]
     Active Substance: VINBLASTINE
     Indication: DESMOID TUMOUR
     Dosage: ON DAY 1, DAY 8, DAY 15 AND DAY 21 FOR THE FIRST?
     Route: 042
  2. METHOTREXATE. [Suspect]
     Active Substance: METHOTREXATE
     Indication: DESMOID TUMOUR
     Dosage: ON DAY 1, DAY 8, DAY 15 AND DAY 21 FOR THE FIRST?
     Route: 042

REACTIONS (1)
  - Hepatobiliary disease [Unknown]
